FAERS Safety Report 9915792 (Version 1)
Quarter: 2014Q1

REPORT INFORMATION
  Report Type: Spontaneous
  Country: US (occurrence: US)
  Receive Date: 20140221
  Receipt Date: 20140221
  Transmission Date: 20141002
  Serious: Yes (Other)
  Sender: FDA-Public Use
  Company Number: US-JNJFOC-20140209133

PATIENT
  Age: 60 Year
  Sex: Female
  Weight: 72.58 kg

DRUGS (2)
  1. TYLENOL EXTRA STRENGTH [Suspect]
     Route: 048
  2. TYLENOL EXTRA STRENGTH [Suspect]
     Indication: HEADACHE
     Dosage: TAKING FOR THE LAST 25 YEARS
     Route: 048

REACTIONS (1)
  - Glaucoma [Not Recovered/Not Resolved]
